FAERS Safety Report 17375149 (Version 1)
Quarter: 2020Q1

REPORT INFORMATION
  Report Type: Spontaneous
  Country: US (occurrence: US)
  Receive Date: 20200204
  Receipt Date: 20200204
  Transmission Date: 20200409
  Serious: Yes (Other)
  Sender: FDA-Public Use
  Company Number: None

PATIENT
  Age: 34 Year
  Sex: Female
  Weight: 68.04 kg

DRUGS (7)
  1. TURMERIC [Concomitant]
     Active Substance: HERBALS\TURMERIC
  2. MULTI [Concomitant]
  3. MIRENA [Suspect]
     Active Substance: LEVONORGESTREL
  4. FISH OIL [Concomitant]
     Active Substance: FISH OIL
  5. IRON [Concomitant]
     Active Substance: IRON
  6. MULTIVITAMINS [Concomitant]
     Active Substance: VITAMINS
  7. IODINE. [Concomitant]
     Active Substance: IODINE

REACTIONS (4)
  - Hypertension [None]
  - Feeling cold [None]
  - Hyperaesthesia [None]
  - Swelling [None]

NARRATIVE: CASE EVENT DATE: 20200119
